FAERS Safety Report 9133327 (Version 1)
Quarter: 2013Q1

REPORT INFORMATION
  Report Type: Spontaneous
  Country: DE (occurrence: DE)
  Receive Date: 20130301
  Receipt Date: 20130301
  Transmission Date: 20140127
  Serious: Yes (Other)
  Sender: FDA-Public Use
  Company Number: DE-ASTRAZENECA-2013SE06804

PATIENT
  Age: 213 Month
  Sex: Female
  Weight: 65 kg

DRUGS (1)
  1. SEROQUEL PROLONG [Suspect]
     Indication: ANTISOCIAL BEHAVIOUR
     Route: 048
     Dates: start: 201210

REACTIONS (3)
  - Blood cholesterol increased [Not Recovered/Not Resolved]
  - Low density lipoprotein increased [Not Recovered/Not Resolved]
  - Off label use [Not Recovered/Not Resolved]
